FAERS Safety Report 21805902 (Version 1)
Quarter: 2023Q1

REPORT INFORMATION
  Report Type: Other
  Country: ZA (occurrence: None)
  Receive Date: 20230102
  Receipt Date: 20230102
  Transmission Date: 20230417
  Serious: Yes (Hospitalization)
  Sender: FDA-Public Use
  Company Number: ZA-ROCHE-3248097

PATIENT
  Sex: Male

DRUGS (13)
  1. ACTEMRA [Suspect]
     Active Substance: TOCILIZUMAB
     Indication: Rheumatoid arthritis
     Route: 042
     Dates: start: 201901, end: 202008
  2. ACTEMRA [Suspect]
     Active Substance: TOCILIZUMAB
     Indication: Rheumatoid arthritis
     Route: 058
     Dates: start: 202009
  3. RITUXIMAB [Suspect]
     Active Substance: RITUXIMAB
     Indication: Product used for unknown indication
     Dosage: LAST DOSE WAS GIVEN ON 13/DEC/2022
     Route: 041
  4. NPLATE [Concomitant]
     Active Substance: ROMIPLOSTIM
     Route: 058
  5. PREDNISONE [Concomitant]
     Active Substance: PREDNISONE
     Route: 048
  6. AZATHIOPRINE [Concomitant]
     Active Substance: AZATHIOPRINE
     Route: 048
  7. ARCOXIA [Concomitant]
     Active Substance: ETORICOXIB
     Route: 048
  8. PANTOPRAZOLE SODIUM [Concomitant]
     Active Substance: PANTOPRAZOLE SODIUM
     Route: 048
  9. TAMSULOSIN HYDROCHLORIDE [Concomitant]
     Active Substance: TAMSULOSIN HYDROCHLORIDE
     Route: 048
  10. XARELTO [Concomitant]
     Active Substance: RIVAROXABAN
     Route: 048
  11. HYDROCHLOROTHIAZIDE [Concomitant]
     Active Substance: HYDROCHLOROTHIAZIDE
     Route: 048
  12. FLUTICASONE PROPIONATE\SALMETEROL XINAFOATE [Concomitant]
     Active Substance: FLUTICASONE PROPIONATE\SALMETEROL XINAFOATE
     Dosage: (50/500) 1 HUB BD
  13. FOLATE SODIUM [Concomitant]
     Active Substance: FOLATE SODIUM
     Route: 048

REACTIONS (23)
  - Platelet count decreased [Unknown]
  - Off label use [Unknown]
  - Thrombocytopenia [Unknown]
  - Interstitial lung disease [Unknown]
  - Pulmonary fibrosis [Unknown]
  - Hilar lymphadenopathy [Unknown]
  - Atrial fibrillation [Unknown]
  - Platelet count decreased [Unknown]
  - Haemorrhage [Unknown]
  - Spontaneous haematoma [Unknown]
  - Petechiae [Unknown]
  - Cerebral haemorrhage [Unknown]
  - Splenectomy [Unknown]
  - Platelet count abnormal [Unknown]
  - Splenosis [Unknown]
  - Renal vein thrombosis [Unknown]
  - Epistaxis [Unknown]
  - Pulmonary embolism [Unknown]
  - C-reactive protein increased [Unknown]
  - Oral herpes [Unknown]
  - Enterobacter infection [Unknown]
  - Lymphadenopathy mediastinal [Unknown]
  - Gingival bleeding [Unknown]
